FAERS Safety Report 16060084 (Version 2)
Quarter: 2019Q2

REPORT INFORMATION
  Report Type: Report from Study
  Country: FR (occurrence: FR)
  Receive Date: 20190312
  Receipt Date: 20190520
  Transmission Date: 20190711
  Serious: Yes (Hospitalization, Other)
  Sender: FDA-Public Use
  Company Number: FR-AMGEN-FRANI2019036276

PATIENT
  Age: 49 Year
  Sex: Female
  Weight: 104 kg

DRUGS (14)
  1. FASTURTEC [Concomitant]
     Active Substance: RASBURICASE
     Dosage: 7.5 MILLIGRAM
     Dates: start: 20160510, end: 20160510
  2. TOPALGIC [TRAMADOL HYDROCHLORIDE] [Concomitant]
     Active Substance: TRAMADOL HYDROCHLORIDE
     Dosage: 50 MILLIGRAM
     Dates: start: 20160512, end: 20160512
  3. WELLVONE [Concomitant]
     Active Substance: ATOVAQUONE
     Dosage: 750 MILLIGRAM
     Dates: start: 20160509
  4. LEVOTHYROX [Concomitant]
     Active Substance: LEVOTHYROXINE
     Dosage: 75 MICROGRAM
     Dates: start: 20160509
  5. ZYVOXID [Concomitant]
     Active Substance: LINEZOLID
     Dosage: 600 MILLIGRAM
     Dates: start: 20160510, end: 20160526
  6. STILNOX [Concomitant]
     Active Substance: ZOLPIDEM TARTRATE
     Dosage: 10 MILLIGRAM
     Dates: start: 20160509
  7. DEXAMETHASONE. [Concomitant]
     Active Substance: DEXAMETHASONE
     Dosage: 10-20 MILLIGRAM
     Dates: start: 20160513, end: 20160523
  8. OFLOCET [OFLOXACIN] [Concomitant]
     Active Substance: OFLOXACIN
     Dosage: 1.5 MILLIGRAM
     Dates: start: 20160512, end: 20160523
  9. XANAX [Concomitant]
     Active Substance: ALPRAZOLAM
     Dosage: 0.25 MILLIGRAM
     Dates: start: 20160509
  10. ZELITREX [Concomitant]
     Active Substance: VALACYCLOVIR HYDROCHLORIDE
     Dosage: 500 MILLIGRAM
     Dates: start: 20160509
  11. FORTUM [CEFTAZIDIME] [Concomitant]
     Active Substance: CEFTAZIDIME
     Dosage: 2 GRAM
     Dates: start: 20160509, end: 20160513
  12. BLINATUMOMAB [Suspect]
     Active Substance: BLINATUMOMAB
     Indication: B-CELL LYMPHOMA
     Dosage: 10.7 MICROGRAM, QD
     Route: 042
     Dates: start: 20160513
  13. TRANXENE [Concomitant]
     Active Substance: CLORAZEPATE DIPOTASSIUM
     Dosage: 10 MILLIGRAM
     Dates: start: 20160512, end: 20160609
  14. SEROPLEX [Concomitant]
     Active Substance: ESCITALOPRAM OXALATE
     Dosage: 10 MILLIGRAM
     Dates: start: 20160509, end: 20160514

REACTIONS (1)
  - Nervous system disorder [Recovered/Resolved]

NARRATIVE: CASE EVENT DATE: 20160514
